FAERS Safety Report 12497297 (Version 1)
Quarter: 2016Q2

REPORT INFORMATION
  Report Type: Other
  Country: AU (occurrence: AU)
  Receive Date: 20160624
  Receipt Date: 20160624
  Transmission Date: 20160815
  Serious: Yes (Hospitalization)
  Sender: FDA-Public Use
  Company Number: AU-UNITED THERAPEUTICS-UNT-2016-009571

PATIENT

DRUGS (1)
  1. UNITUXIN [Suspect]
     Active Substance: DINUTUXIMAB
     Indication: PRODUCT USED FOR UNKNOWN INDICATION
     Route: 041

REACTIONS (4)
  - Myalgia [Unknown]
  - Pain [Unknown]
  - Lethargy [Unknown]
  - Visual impairment [Unknown]

NARRATIVE: CASE EVENT DATE: 201606
